FAERS Safety Report 4704392-5 (Version None)
Quarter: 2005Q2

REPORT INFORMATION
  Report Type: 
  Country: None (occurrence: None)
  Receive Date: 20050629
  Receipt Date: 20050629
  Transmission Date: 20051028
  Serious: Yes (Other)
  Sender: FDA-Public Use
  Company Number: None

PATIENT
  Sex: Female
  Weight: 79.3795 kg

DRUGS (1)
  1. DURAGESIC-25 [Suspect]
     Dosage: 25 MCG Q 3 DAYS [LIFETIME]

REACTIONS (1)
  - DRUG INEFFECTIVE [None]
